FAERS Safety Report 5230515-8 (Version None)
Quarter: 2007Q1

REPORT INFORMATION
  Report Type: 
  Country: None (occurrence: None)
  Receive Date: 20070206
  Receipt Date: 20070129
  Transmission Date: 20070707
  Serious: Yes (Hospitalization)
  Sender: FDA-Public Use
  Company Number: JP-JNJFOC-20061207011

PATIENT
  Sex: Female
  Weight: 47 kg

DRUGS (22)
  1. REMICADE [Suspect]
     Route: 042
  2. REMICADE [Suspect]
     Route: 042
  3. REMICADE [Suspect]
     Route: 042
  4. REMICADE [Suspect]
     Route: 042
  5. REMICADE [Suspect]
     Route: 042
  6. REMICADE [Suspect]
     Route: 042
  7. REMICADE [Suspect]
     Route: 042
  8. REMICADE [Suspect]
     Route: 042
  9. REMICADE [Suspect]
     Route: 042
  10. REMICADE [Suspect]
     Route: 042
  11. REMICADE [Suspect]
     Route: 042
  12. REMICADE [Suspect]
     Route: 042
  13. REMICADE [Suspect]
     Route: 042
  14. REMICADE [Suspect]
     Route: 042
  15. REMICADE [Suspect]
     Indication: RHEUMATOID ARTHRITIS
     Route: 042
  16. METHOTREXATE [Suspect]
     Indication: RHEUMATOID ARTHRITIS
     Route: 048
  17. RHEUMATREX [Suspect]
     Indication: RHEUMATOID ARTHRITIS
     Route: 048
  18. FOLIAMIN [Concomitant]
     Indication: PROPHYLAXIS
     Route: 048
  19. GASTER D [Concomitant]
     Route: 048
  20. ASPIRIN [Concomitant]
     Indication: PULMONARY EMBOLISM
     Route: 048
  21. TAGAMET [Concomitant]
     Indication: GASTRITIS PROPHYLAXIS
     Route: 048
  22. MUCOSTA [Concomitant]
     Indication: GASTRITIS PROPHYLAXIS
     Route: 048

REACTIONS (1)
  - HERPES ZOSTER [None]
